FAERS Safety Report 12074103 (Version 2)
Quarter: 2016Q4

REPORT INFORMATION
  Report Type: Report from Study
  Country: US (occurrence: US)
  Receive Date: 20160212
  Receipt Date: 20161011
  Transmission Date: 20170206
  Serious: Yes (Other)
  Sender: FDA-Public Use
  Company Number: US-BRISTOL-MYERS SQUIBB COMPANY-BMS-2016-008603

PATIENT
  Age: 59 Year
  Sex: Male
  Weight: 107 kg

DRUGS (16)
  1. PAXIL [Concomitant]
     Active Substance: PAROXETINE HYDROCHLORIDE
     Indication: DEPRESSION
     Dosage: 20 MG, QD
     Route: 048
     Dates: start: 2005
  2. TYLENOL [Concomitant]
     Active Substance: ACETAMINOPHEN
     Indication: HEADACHE
  3. PREDNISONE. [Concomitant]
     Active Substance: PREDNISONE
     Indication: SEIZURE
  4. IPILIMUMAB [Suspect]
     Active Substance: IPILIMUMAB
     Indication: METASTATIC MALIGNANT MELANOMA
     Dosage: 1 DF: 640 UNIT NOS,LAST DOSE: 07DEC2015
     Route: 042
     Dates: start: 20151005, end: 20151207
  5. OMEPRAZOLE. [Concomitant]
     Active Substance: OMEPRAZOLE
     Indication: GASTROOESOPHAGEAL REFLUX DISEASE
     Dosage: 20 MG, BID
     Route: 048
     Dates: start: 2011
  6. AXIRON [Concomitant]
     Active Substance: TESTOSTERONE
     Indication: BLOOD TESTOSTERONE DECREASED
     Dosage: 1.5 ML, UNK
     Route: 061
     Dates: start: 2009, end: 2016
  7. PREDNISONE. [Concomitant]
     Active Substance: PREDNISONE
     Indication: PYREXIA
     Dosage: 10 MG, STOPPED ON 06JAN AND RESTARTED ON 20 AND STOPPED ON 26JAN
     Route: 048
     Dates: start: 20160105
  8. VITAMIN D3 [Concomitant]
     Active Substance: CHOLECALCIFEROL
     Indication: VITAMIN D DEFICIENCY
     Dosage: 5000 UNIT, QD
     Route: 048
     Dates: start: 2012
  9. FLOMAX [Concomitant]
     Active Substance: TAMSULOSIN HYDROCHLORIDE
     Indication: URINARY TRACT DISORDER
     Dosage: 0.4 MG, QD
     Route: 048
     Dates: start: 2010
  10. TYLENOL [Concomitant]
     Active Substance: ACETAMINOPHEN
     Indication: PYREXIA
     Dosage: 325 MG, PRN
     Route: 048
     Dates: start: 20151021
  11. IBUPROFEN. [Concomitant]
     Active Substance: IBUPROFEN
     Indication: PYREXIA
     Dosage: 200 MG, QD
     Route: 048
     Dates: start: 20151216
  12. NIVOLUMAB [Suspect]
     Active Substance: NIVOLUMAB
     Indication: METASTATIC MALIGNANT MELANOMA
     Dosage: 1 DF: 214 UNIT NOS, LAST DOSE: 07DEC2015
     Route: 042
     Dates: start: 20151005, end: 20151207
  13. VITAMIN B12 [Concomitant]
     Active Substance: CYANOCOBALAMIN
     Indication: ADVERSE EVENT
     Dosage: 10 MG, UNK
     Route: 048
     Dates: start: 201508
  14. KEPPRA [Concomitant]
     Active Substance: LEVETIRACETAM
     Indication: SEIZURE
     Dosage: 2000 MG, STOPPED ON 07JAN AND RESTARTED ON 07JAN2016
     Route: 042
     Dates: start: 20160106
  15. SYNTHROID [Concomitant]
     Active Substance: LEVOTHYROXINE SODIUM
     Indication: HYPOTHYROIDISM
     Dosage: 50 ?G, QD
     Route: 048
     Dates: start: 20150113
  16. METHYL FOLATE [Concomitant]
     Indication: ADVERSE EVENT
     Dosage: 10 MG, QD
     Route: 048

REACTIONS (1)
  - Ischaemic stroke [Recovered/Resolved]

NARRATIVE: CASE EVENT DATE: 20160201
